FAERS Safety Report 21496716 (Version 1)
Quarter: 2022Q4

REPORT INFORMATION
  Report Type: Spontaneous
  Country: FR (occurrence: FR)
  Receive Date: 20221022
  Receipt Date: 20221022
  Transmission Date: 20230112
  Serious: Yes (Hospitalization)
  Sender: FDA-Public Use
  Company Number: None

PATIENT
  Age: 24 Year
  Sex: Female

DRUGS (8)
  1. BUPRENORPHINE [Suspect]
     Active Substance: BUPRENORPHINE
     Indication: Wrong patient received product
     Dosage: UNIT DOSE : 16 MG , DURATION : 1 DAY
     Route: 065
     Dates: start: 20220922, end: 20220922
  2. VALIUM [Suspect]
     Active Substance: DIAZEPAM
     Indication: Wrong patient received product
     Dosage: FORM STRENGTH : 1 PER CENT , UNIT DOSE : 5 MG , DURATION : 1 DAY
     Dates: start: 20220922, end: 20220922
  3. LOXAPINE [Suspect]
     Active Substance: LOXAPINE
     Indication: Wrong patient received product
     Dosage: DRINKABLE SOLUTION , UNIT DOSE : 25 MG , DURATION : 1 DAY
     Dates: start: 20220922, end: 20220922
  4. RISPERIDONE [Concomitant]
     Active Substance: RISPERIDONE
     Indication: Mental disorder
     Dosage: UNIT DOSE : 2 MG , FREQUENCY TIME : 1 DAY
  5. FLUOXETINE HYDROCHLORIDE [Concomitant]
     Active Substance: FLUOXETINE HYDROCHLORIDE
     Indication: Mental disorder
     Dosage: CHLORHYDRATE DE FLUOXETINE , UNIT DOSE :  20 MG  , FREQUENCY TIME :  1 DAY
  6. TROPATEPINE HYDROCHLORIDE [Concomitant]
     Active Substance: TROPATEPINE HYDROCHLORIDE
     Indication: Parkinsonism
     Dosage: FORM STRENGTH : 10 MG
  7. LORAZEPAM [Concomitant]
     Active Substance: LORAZEPAM
     Indication: Mental disorder
     Dosage: UNIT DOSE : 3 MG   , FREQUENCY TIME :  1 DAY
  8. LOXAPINE [Concomitant]
     Active Substance: LOXAPINE
     Indication: Mental disorder
     Dosage: UNIT DOSE :  45 MG  , FREQUENCY TIME :  1 DAY

REACTIONS (3)
  - Loss of consciousness [Recovered/Resolved]
  - Hot flush [Recovered/Resolved]
  - Wrong patient received product [Recovered/Resolved]

NARRATIVE: CASE EVENT DATE: 20220922
